FAERS Safety Report 23159513 (Version 2)
Quarter: 2023Q4

REPORT INFORMATION
  Report Type: Report from Study
  Country: CN (occurrence: CN)
  Receive Date: 20231108
  Receipt Date: 20231115
  Transmission Date: 20240109
  Serious: Yes (Hospitalization, Other)
  Sender: FDA-Public Use
  Company Number: CN-UCBSA-2023020984

PATIENT
  Age: 6 Year
  Sex: Male
  Weight: 36 kg

DRUGS (19)
  1. LACOSAMIDE [Suspect]
     Active Substance: LACOSAMIDE
     Indication: Epilepsy
     Dosage: 50 MILLIGRAM DAILY
     Dates: start: 20230323, end: 20230406
  2. LACOSAMIDE [Suspect]
     Active Substance: LACOSAMIDE
     Dosage: 100 MILLIGRAM DAILY
     Dates: start: 20230323, end: 20230406
  3. LACOSAMIDE [Suspect]
     Active Substance: LACOSAMIDE
     Dosage: 150 MILLIGRAM DAILY
     Dates: start: 20230407, end: 20230506
  4. LACOSAMIDE [Suspect]
     Active Substance: LACOSAMIDE
     Dosage: 200 MILLIGRAM DAILY
     Dates: start: 20230507, end: 20230913
  5. LEVETIRACETAM [Suspect]
     Active Substance: LEVETIRACETAM
     Indication: Epilepsy
     Dosage: 0.5 GRAM, 2X/DAY (BID)
     Dates: start: 202304
  6. VITAMIN D NOS [Concomitant]
     Active Substance: VITAMIN D NOS
     Indication: Prophylaxis
     Dosage: 30 MICROGRAM, 2X/DAY (BID)
     Dates: start: 20230112, end: 20230319
  7. VITAMIN D NOS [Concomitant]
     Active Substance: VITAMIN D NOS
     Indication: Vitamin supplementation
     Dosage: 40 INTERNATIONAL UNIT, ONCE DAILY (QD)
     Dates: start: 20230320
  8. CHLORAL HYDRATE [Concomitant]
     Active Substance: CHLORAL HYDRATE
     Indication: Seizure prophylaxis
     Dosage: 30 MILLILITER ONCE
     Dates: start: 20230415, end: 20230415
  9. CHLORAL HYDRATE [Concomitant]
     Active Substance: CHLORAL HYDRATE
     Indication: Sedation
  10. DEPROTEINISED CALF SERUM [Concomitant]
     Indication: Nervous system disorder
     Dosage: 0.4 GRAM, ONCE DAILY (QD)
     Route: 042
     Dates: start: 20230415, end: 20230419
  11. MANNITOL [Concomitant]
     Active Substance: MANNITOL
     Indication: Brain oedema
     Dosage: 65 MILLILITER, ONCE DAILY (QD)
     Route: 042
     Dates: start: 20230415, end: 20230415
  12. MANNITOL [Concomitant]
     Active Substance: MANNITOL
     Indication: Reduction of increased intracranial pressure
     Dosage: 62 MILLILITER, ONCE DAILY (QD)
     Route: 042
     Dates: start: 20230416, end: 20230417
  13. VALPROATE SODIUM [Concomitant]
     Active Substance: VALPROATE SODIUM
     Indication: Epilepsy
     Dosage: 3.5 MILLILITER, 2X/DAY (BID)
     Dates: start: 20201103, end: 20210325
  14. VALPROATE SODIUM [Concomitant]
     Active Substance: VALPROATE SODIUM
     Dosage: 4 MILLILITER, 2X/DAY (BID)
     Dates: start: 20210326, end: 20210618
  15. VALPROATE SODIUM [Concomitant]
     Active Substance: VALPROATE SODIUM
     Dosage: 4.5 MILLILITER, 2X/DAY (BID)
     Dates: start: 20210619, end: 20211210
  16. VALPROATE SODIUM [Concomitant]
     Active Substance: VALPROATE SODIUM
     Dosage: 5 MILLILITER, 2X/DAY (BID)
     Dates: start: 20211211, end: 20230322
  17. VALPROATE SODIUM [Concomitant]
     Active Substance: VALPROATE SODIUM
     Dosage: 5 MILLILITER, 2X/DAY (BID)
     Dates: start: 20211211, end: 20230322
  18. VALPROATE SODIUM [Concomitant]
     Active Substance: VALPROATE SODIUM
     Indication: Epilepsy
     Dosage: 0.25 GRAM, 2X/DAY (BID)
     Dates: start: 20230323
  19. VALPROATE SODIUM [Concomitant]
     Active Substance: VALPROATE SODIUM
     Dosage: 0.5 GRAM, 2X/DAY (BID)
     Dates: start: 202304

REACTIONS (2)
  - Epilepsy [Recovered/Resolved]
  - Off label use [Unknown]

NARRATIVE: CASE EVENT DATE: 20230323
